FAERS Safety Report 5507949-7 (Version None)
Quarter: 2007Q4

REPORT INFORMATION
  Report Type: 
  Country: None (occurrence: None)
  Receive Date: 20071106
  Receipt Date: 20071025
  Transmission Date: 20080405
  Serious: Yes (Other)
  Sender: FDA-Public Use
  Company Number: IE-PFIZER INC-2007090776

PATIENT
  Sex: Female

DRUGS (6)
  1. CARDURA [Suspect]
     Indication: HYPERTENSION
     Route: 048
  2. CALCICHEW-D3 [Concomitant]
  3. CENTYL [Concomitant]
  4. CITALOPRAM HYDROBROMIDE [Concomitant]
  5. VALSARTAN [Concomitant]
     Route: 048
  6. NU-SEALS [Concomitant]
     Route: 048

REACTIONS (1)
  - CONSTIPATION [None]
